FAERS Safety Report 17458911 (Version 4)
Quarter: 2023Q2

REPORT INFORMATION
  Report Type: Report from Study
  Country: DE (occurrence: DE)
  Receive Date: 20200225
  Receipt Date: 20230414
  Transmission Date: 20230722
  Serious: Yes (Death, Hospitalization, Other)
  Sender: FDA-Public Use
  Company Number: DE-ACTELION-A-CH2019-195387

PATIENT
  Age: 67 Year
  Sex: Female
  Weight: 90 kg

DRUGS (51)
  1. MORPHINE SULFATE [Suspect]
     Active Substance: MORPHINE SULFATE
     Indication: Pain
     Dosage: UNK
     Route: 048
  2. MORPHINE SULFATE [Suspect]
     Active Substance: MORPHINE SULFATE
     Indication: Injection site reaction
     Dosage: UNK
     Route: 048
     Dates: start: 2005, end: 20190724
  3. REMODULIN [Suspect]
     Active Substance: TREPROSTINIL
     Indication: Pulmonary arterial hypertension
     Dosage: 32.6 MCG, QD
     Route: 058
     Dates: start: 20200112, end: 20200331
  4. REMODULIN [Suspect]
     Active Substance: TREPROSTINIL
     Dosage: 31.4 MCG, QD
     Route: 058
     Dates: start: 20200105, end: 20200112
  5. REMODULIN [Suspect]
     Active Substance: TREPROSTINIL
     Dosage: 29.4 MCG, QD
     Route: 058
     Dates: start: 20191222, end: 20191229
  6. REMODULIN [Suspect]
     Active Substance: TREPROSTINIL
     Dosage: 30.4 MCG, QD
     Route: 058
     Dates: start: 20191221, end: 20200105
  7. REMODULIN [Suspect]
     Active Substance: TREPROSTINIL
     Dosage: 28.4 MCG, QD
     Route: 058
     Dates: start: 20191215, end: 20191222
  8. REMODULIN [Suspect]
     Active Substance: TREPROSTINIL
     Dosage: 27.5 MCG, QD
     Route: 058
     Dates: start: 20191208, end: 20191215
  9. REMODULIN [Suspect]
     Active Substance: TREPROSTINIL
     Dosage: 26.5 MCG, QD
     Route: 058
     Dates: start: 20191201, end: 20191208
  10. REMODULIN [Suspect]
     Active Substance: TREPROSTINIL
     Dosage: 25.5 MCG, QD
     Route: 058
     Dates: start: 20191124, end: 20191201
  11. REMODULIN [Suspect]
     Active Substance: TREPROSTINIL
     Dosage: 24.5 MCG, QD
     Route: 058
     Dates: start: 20191117, end: 20191124
  12. REMODULIN [Suspect]
     Active Substance: TREPROSTINIL
     Dosage: 23.5 MCG, QD
     Route: 058
     Dates: start: 20191110, end: 20191117
  13. REMODULIN [Suspect]
     Active Substance: TREPROSTINIL
     Dosage: 22.5 MCG, QD
     Route: 058
     Dates: start: 20191103, end: 20191110
  14. REMODULIN [Suspect]
     Active Substance: TREPROSTINIL
     Dosage: 21.6 MCG, QD
     Route: 058
     Dates: start: 20191027, end: 20191103
  15. REMODULIN [Suspect]
     Active Substance: TREPROSTINIL
     Dosage: 20.6 MCG, QD
     Route: 058
     Dates: start: 20191021, end: 20191027
  16. REMODULIN [Suspect]
     Active Substance: TREPROSTINIL
     Dosage: 19.6 MCG, QD
     Route: 058
     Dates: start: 20191014, end: 20191021
  17. REMODULIN [Suspect]
     Active Substance: TREPROSTINIL
     Dosage: 18.6 MCG, QD
     Route: 058
     Dates: start: 20191007, end: 20191014
  18. REMODULIN [Suspect]
     Active Substance: TREPROSTINIL
     Dosage: 17.6 MCG, QD
     Route: 058
     Dates: start: 20190930, end: 20191007
  19. REMODULIN [Suspect]
     Active Substance: TREPROSTINIL
     Dosage: 16.7 MCG, QD
     Route: 058
     Dates: start: 20190923, end: 20190930
  20. REMODULIN [Suspect]
     Active Substance: TREPROSTINIL
     Dosage: 15.7 MCG, QD
     Route: 058
     Dates: start: 20190916, end: 20190923
  21. REMODULIN [Suspect]
     Active Substance: TREPROSTINIL
     Dosage: 14.7 MCG, QD
     Route: 058
     Dates: start: 20190909, end: 20190916
  22. REMODULIN [Suspect]
     Active Substance: TREPROSTINIL
     Dosage: 13.7 MCG, QD
     Route: 058
     Dates: start: 20190902, end: 20190912
  23. REMODULIN [Suspect]
     Active Substance: TREPROSTINIL
     Dosage: 12.7 MCG, QD
     Route: 058
     Dates: start: 20190827, end: 20190902
  24. REMODULIN [Suspect]
     Active Substance: TREPROSTINIL
     Dosage: 10.8 MCG, QD
     Route: 058
     Dates: start: 20190801, end: 20190827
  25. REMODULIN [Suspect]
     Active Substance: TREPROSTINIL
     Dosage: 9.8 MCG, QD
     Route: 058
     Dates: start: 20190724, end: 20190801
  26. REMODULIN [Suspect]
     Active Substance: TREPROSTINIL
     Dosage: 14.7 MCG, QD
     Route: 058
     Dates: start: 20190723, end: 20190724
  27. OPSUMIT [Suspect]
     Active Substance: MACITENTAN
     Indication: Pulmonary arterial hypertension
     Dosage: 10 MILLIGRAM, QD
     Route: 048
     Dates: start: 20190712, end: 20200331
  28. OXYCODONE [Concomitant]
     Active Substance: OXYCODONE
     Indication: Pain
     Dosage: UNK, PRN
     Route: 048
     Dates: start: 20190728, end: 20190729
  29. MORPHINE [Concomitant]
     Active Substance: MORPHINE
     Indication: Pain
     Dosage: UNK
     Route: 048
     Dates: start: 2011, end: 20190729
  30. MORPHINE HYDROCHLORIDE [Concomitant]
     Active Substance: MORPHINE HYDROCHLORIDE
     Indication: Pain
     Dosage: UNK
     Route: 048
     Dates: start: 20190726, end: 20200331
  31. MORPHINE HYDROCHLORIDE [Concomitant]
     Active Substance: MORPHINE HYDROCHLORIDE
     Dosage: UNK UNK, PRN
     Route: 048
     Dates: start: 2011, end: 20190729
  32. MORPHINE HYDROCHLORIDE [Concomitant]
     Active Substance: MORPHINE HYDROCHLORIDE
     Dosage: UNK
     Route: 048
     Dates: start: 2005, end: 20190724
  33. ADCIRCA [Concomitant]
     Active Substance: TADALAFIL
     Indication: Pulmonary arterial hypertension
     Dosage: 20 MG, DAILY (20 MG, QD)
     Route: 048
     Dates: start: 20190727, end: 20200331
  34. ADCIRCA [Concomitant]
     Active Substance: TADALAFIL
     Dosage: 40 MG, QD
     Route: 048
     Dates: start: 20190712, end: 20190725
  35. ADCIRCA [Concomitant]
     Active Substance: TADALAFIL
     Dosage: 20 MG, QD
     Route: 048
     Dates: start: 20190706, end: 20190712
  36. LAXANS                             /00064401/ [Concomitant]
     Indication: Constipation
     Dosage: UNK
     Route: 048
     Dates: start: 20190706, end: 20190802
  37. SULPIRIDE [Concomitant]
     Active Substance: SULPIRIDE
     Indication: Pain
     Dosage: UNK
     Route: 048
     Dates: start: 2005, end: 20200331
  38. OXYGEN [Concomitant]
     Active Substance: OXYGEN
     Indication: Respiratory failure
     Dosage: UNK
     Route: 055
     Dates: start: 2017, end: 20200331
  39. PROPIVERINE HYDROCHLORIDE [Concomitant]
     Active Substance: PROPIVERINE HYDROCHLORIDE
     Indication: Bladder irritation
     Dosage: UNK
     Route: 048
     Dates: start: 2009, end: 20200331
  40. MOVICOL                            /01625101/ [Concomitant]
     Indication: Constipation
     Dosage: UNK, PRN
     Route: 048
     Dates: start: 2010, end: 20200331
  41. ALDACTONE                          /00006201/ [Concomitant]
     Indication: Oedema
     Dosage: UNK
     Route: 048
     Dates: start: 20190705, end: 20200331
  42. ASPIRIN [Concomitant]
     Active Substance: ASPIRIN
     Indication: Thrombosis prophylaxis
     Dosage: UNK
     Route: 048
     Dates: start: 2015, end: 20200331
  43. RAMIPRIL [Concomitant]
     Active Substance: RAMIPRIL
     Indication: Hypertension
     Dosage: UNK
     Route: 048
     Dates: start: 2000, end: 20200331
  44. SIMVASTATIN [Concomitant]
     Active Substance: SIMVASTATIN
     Indication: Prophylaxis
     Dosage: UNK
     Route: 048
     Dates: start: 2015, end: 20200331
  45. MAGNESIUM [Concomitant]
     Active Substance: MAGNESIUM
     Indication: Muscle spasms
     Dosage: UNK
     Route: 048
     Dates: start: 20190707, end: 20190718
  46. ENOXAPARIN SODIUM [Concomitant]
     Active Substance: ENOXAPARIN SODIUM
     Indication: Thrombosis prophylaxis
     Dosage: UNK
     Route: 058
     Dates: start: 20190704, end: 20190805
  47. PREGABALIN [Concomitant]
     Active Substance: PREGABALIN
     Indication: Pain
     Dosage: UNK
     Route: 048
     Dates: start: 2009, end: 20200331
  48. ESOMEPRAZOLE [Concomitant]
     Active Substance: ESOMEPRAZOLE
     Indication: Gastritis prophylaxis
     Dosage: UNK
     Route: 048
     Dates: start: 20190724, end: 20190724
  49. ACETAMINOPHEN [Concomitant]
     Active Substance: ACETAMINOPHEN
     Indication: Pain
     Dosage: UNK
     Route: 048
     Dates: start: 20190729, end: 20190729
  50. PANTOPRAZOLE SODIUM [Concomitant]
     Active Substance: PANTOPRAZOLE SODIUM
     Indication: Prophylaxis
     Dosage: UNK
     Route: 048
     Dates: start: 2009, end: 20200331
  51. NOVALGIN (METAMIZOLE SODIUM) [Concomitant]
     Active Substance: METAMIZOLE SODIUM
     Indication: Pain
     Dosage: UNK
     Route: 048
     Dates: start: 2009, end: 20200331

REACTIONS (17)
  - Death [Fatal]
  - Toxicity to various agents [Fatal]
  - Weight decreased [Fatal]
  - Pulmonary arterial hypertension [Fatal]
  - Pain [Fatal]
  - PO2 decreased [Fatal]
  - Dyspnoea [Fatal]
  - Dependence on oxygen therapy [Fatal]
  - Injection site reaction [Fatal]
  - Disease progression [Fatal]
  - Acute kidney injury [Fatal]
  - Renal impairment [Fatal]
  - Medical device implantation [Fatal]
  - Hypokalaemia [Fatal]
  - Condition aggravated [Fatal]
  - Oedema [Fatal]
  - Hypotension [Fatal]

NARRATIVE: CASE EVENT DATE: 20190724
